FAERS Safety Report 20685387 (Version 1)
Quarter: 2022Q2

REPORT INFORMATION
  Report Type: Spontaneous
  Country: US (occurrence: US)
  Receive Date: 20220407
  Receipt Date: 20220407
  Transmission Date: 20220721
  Serious: No
  Sender: FDA-Public Use
  Company Number: US-PFIZER INC-202101310063

PATIENT
  Age: 56 Year
  Sex: Female
  Weight: 96.961 kg

DRUGS (10)
  1. IBRANCE [Suspect]
     Active Substance: PALBOCICLIB
     Indication: Breast cancer female
     Dosage: 100 MG, CYCLIC (DAILY FOR 21 DAYS ON, 7 DAYS OFF)
     Route: 048
     Dates: start: 201811
  2. VITAMIN C [Concomitant]
     Active Substance: ASCORBIC ACID
  3. CALCIUM [Concomitant]
     Active Substance: CALCIUM
  4. VITAMIN D3 [Concomitant]
     Active Substance: CHOLECALCIFEROL
  5. PROLIA [Concomitant]
     Active Substance: DENOSUMAB
  6. FASLODEX [Concomitant]
     Active Substance: FULVESTRANT
  7. OMEPRAZOLE [Concomitant]
     Active Substance: OMEPRAZOLE
  8. LEVOTHYROXINE [Concomitant]
     Active Substance: LEVOTHYROXINE
  9. TIADYLT ER [Concomitant]
     Active Substance: DILTIAZEM HYDROCHLORIDE
  10. FLECAINIDE ACETATE [Concomitant]
     Active Substance: FLECAINIDE ACETATE

REACTIONS (8)
  - Nausea [Unknown]
  - Diarrhoea [Unknown]
  - Alopecia [Unknown]
  - Hair disorder [Unknown]
  - Stomatitis [Unknown]
  - Onychoclasis [Unknown]
  - Nail discolouration [Unknown]
  - Bone density decreased [Unknown]
